FAERS Safety Report 6428960-8 (Version None)
Quarter: 2009Q4

REPORT INFORMATION
  Report Type: 
  Country: None (occurrence: None)
  Receive Date: 20091105
  Receipt Date: 20091006
  Transmission Date: 20100525
  Serious: Yes (Other)
  Sender: FDA-Public Use
  Company Number: PT-B.I. PHARMACEUTICALS,INC./RIDGEFIELD-2009-DE-06388PO

PATIENT
  Sex: Female

DRUGS (10)
  1. MOBIC [Suspect]
     Dosage: 15 MG
     Route: 048
     Dates: start: 20090807, end: 20090817
  2. VALSARTAN [Concomitant]
     Indication: HYPERTENSION
     Dosage: 92.5 MG
     Route: 048
     Dates: start: 20060101
  3. HYDROCHLOROTHYAZIDE [Concomitant]
     Indication: HYPERTENSION
     Dosage: 92.5 MG
     Route: 048
     Dates: start: 20060101
  4. LIPASE [Concomitant]
     Indication: GASTRIC DISORDER
     Dosage: 2 ANZ
     Route: 048
     Dates: start: 20070101
  5. PROTEASE [Concomitant]
     Indication: GASTRIC DISORDER
     Dosage: 2 ANZ
     Route: 048
     Dates: start: 20070101
  6. AMYLASE [Concomitant]
     Indication: GASTRIC DISORDER
     Dosage: 2 ANZ
     Route: 048
     Dates: start: 20070101
  7. LEVOTHYROXINE SODIUM [Concomitant]
     Indication: HYPOTHYROIDISM
     Dosage: 1 ANZ
     Route: 048
     Dates: start: 20050101
  8. OMEPRAZOLE [Concomitant]
     Indication: GASTRIC DISORDER
     Dosage: 20 MG
     Route: 048
     Dates: start: 20050101
  9. LORAZEPAM [Concomitant]
     Indication: INSOMNIA
     Dosage: 2.5 MG
     Route: 048
     Dates: start: 20000101
  10. CLOPIDOGREL HYDROGEN SULPHATE [Concomitant]
     Indication: PROPHYLAXIS
     Dosage: 75 MG
     Route: 048
     Dates: start: 20060101

REACTIONS (2)
  - EPISTAXIS [None]
  - HYPERTENSION [None]
